FAERS Safety Report 10157113 (Version 3)
Quarter: 2014Q2

REPORT INFORMATION
  Report Type: Spontaneous
  Country: US (occurrence: US)
  Receive Date: 20140507
  Receipt Date: 20140624
  Transmission Date: 20141212
  Serious: No
  Sender: FDA-Public Use
  Company Number: US-PFIZER INC-2014124178

PATIENT
  Age: 76 Year
  Sex: Male

DRUGS (6)
  1. CELEBREX [Suspect]
     Indication: PAIN
     Dosage: 100 MG, 2X/DAY FOR 8 YEARS
  2. CELEBREX [Suspect]
     Dosage: 100 MG, 1X/DAY
  3. LIPITOR [Concomitant]
     Dosage: 10 MG, UNK
  4. FINASTERIDE [Concomitant]
     Dosage: UNK, (SMALL DOSE)
  5. FLOMAX [Concomitant]
     Dosage: 4 MG, UNK
  6. PRILOSEC [Concomitant]
     Indication: GASTROOESOPHAGEAL REFLUX DISEASE
     Dosage: UNK

REACTIONS (2)
  - Incorrect drug administration duration [Unknown]
  - Musculoskeletal pain [Unknown]
